FAERS Safety Report 13383450 (Version 2)
Quarter: 2017Q1

REPORT INFORMATION
  Report Type: Report from Study
  Country: US (occurrence: US)
  Receive Date: 20170329
  Receipt Date: 20170331
  Transmission Date: 20170429
  Serious: Yes (Hospitalization)
  Sender: FDA-Public Use
  Company Number: US-TEVA-694856USA

PATIENT
  Age: 27 Year
  Sex: Female

DRUGS (4)
  1. RANITIDINE HYDROCHLORIDE. [Concomitant]
     Active Substance: RANITIDINE HYDROCHLORIDE
     Dosage: QAM
     Route: 048
  2. LAMICTAL [Concomitant]
     Active Substance: LAMOTRIGINE
     Dosage: QAM
     Route: 048
  3. CLOZAPINE. [Suspect]
     Active Substance: CLOZAPINE
     Dosage: 200 MILLIGRAM DAILY;
     Route: 048
  4. SULINDAC. [Concomitant]
     Active Substance: SULINDAC
     Route: 048

REACTIONS (6)
  - Psychotic disorder [Recovering/Resolving]
  - Psychiatric decompensation [Recovering/Resolving]
  - Schizophrenia [Recovered/Resolved]
  - Psychiatric symptom [Recovering/Resolving]
  - Drug dose omission [Recovering/Resolving]
  - Drug dose omission [Not Recovered/Not Resolved]

NARRATIVE: CASE EVENT DATE: 2016
